FAERS Safety Report 6429361-9 (Version None)
Quarter: 2009Q4

REPORT INFORMATION
  Report Type: 
  Country: None (occurrence: None)
  Receive Date: 20091105
  Receipt Date: 20090515
  Transmission Date: 20100525
  Serious: No
  Sender: FDA-Public Use
  Company Number: US-ABBOTT-09P-163-0573843-00

PATIENT
  Age: 35 Year
  Sex: Female

DRUGS (6)
  1. KALETRA [Suspect]
     Indication: HIV INFECTION
     Dosage: 1000MG DAILY
     Route: 048
     Dates: start: 20080824, end: 20081026
  2. KALETRA [Suspect]
     Dates: start: 20081026, end: 20081123
  3. KALETRA [Suspect]
     Dates: start: 20081123
  4. LAMIVUDINE + ZIDOVUDINE [Suspect]
     Indication: HIV INFECTION
     Route: 048
     Dates: start: 20080824
  5. LAMIVUDINE + ZIDOVUDINE [Concomitant]
     Indication: DRUG USE FOR UNKNOWN INDICATION
     Route: 048
  6. LAMIVUDINE + ZIDOVUDINE [Concomitant]
     Route: 048

REACTIONS (1)
  - LIVER FUNCTION TEST ABNORMAL [None]
